FAERS Safety Report 7164569-9 (Version None)
Quarter: 2010Q4

REPORT INFORMATION
  Report Type: 
  Country: None (occurrence: None)
  Receive Date: 20101123
  Receipt Date: 20100909
  Transmission Date: 20110411
  Serious: No
  Sender: FDA-Public Use
  Company Number: 018614

PATIENT
  Sex: Female

DRUGS (2)
  1. CIMZIA [Suspect]
     Indication: CROHN'S DISEASE
     Dosage: SUBCUTANEOUS, 400 MG 1X/MONTH SUBCUTANEOUS
     Route: 058
     Dates: start: 20080926, end: 20100101
  2. CIMZIA [Suspect]
     Indication: CROHN'S DISEASE
     Dosage: SUBCUTANEOUS, 400 MG 1X/MONTH SUBCUTANEOUS
     Route: 058
     Dates: start: 20100907

REACTIONS (2)
  - DRUG DOSE OMISSION [None]
  - FATIGUE [None]
